FAERS Safety Report 8093483-X (Version None)
Quarter: 2012Q1

REPORT INFORMATION
  Report Type: 
  Country: None (occurrence: None)
  Receive Date: 20120129
  Receipt Date: 20110905
  Transmission Date: 20120608
  Serious: No
  Sender: FDA-Public Use
  Company Number: US-ABBOTT-11P-163-0851576-00

PATIENT
  Age: 29 Year
  Sex: Male

DRUGS (4)
  1. HUMIRA [Suspect]
     Dates: start: 20110101
  2. ASPIRIN ACETAMINOPHEN CAFFEINE COMBO PILL [Concomitant]
     Indication: PAIN
     Dosage: PRN
  3. PEPCID AC [Concomitant]
     Indication: PRODUCT USED FOR UNKNOWN INDICATION
  4. HUMIRA [Suspect]
     Indication: PSORIASIS
     Dates: start: 20090601

REACTIONS (2)
  - INJECTION SITE HAEMORRHAGE [None]
  - INJECTION SITE DISCOLOURATION [None]
